FAERS Safety Report 8919180 (Version 1)
Quarter: 2012Q4

REPORT INFORMATION
  Report Type: 
  Country: JP (occurrence: JP)
  Receive Date: 20121121
  Receipt Date: 20121121
  Transmission Date: 20130627
  Serious: Yes (Other)
  Sender: FDA-Public Use
  Company Number: JP-SANOFI-AVENTIS-2012SA084940

PATIENT
  Sex: Male

DRUGS (17)
  1. ETHAMBUTOL [Suspect]
     Indication: PERICARDITIS TUBERCULOUS
     Route: 065
     Dates: start: 199612, end: 199701
  2. ETHAMBUTOL [Suspect]
     Indication: PERICARDITIS TUBERCULOUS
     Route: 065
     Dates: start: 199702, end: 19970407
  3. ETHAMBUTOL [Suspect]
     Indication: PERICARDITIS TUBERCULOUS
     Route: 065
     Dates: start: 19970515, end: 199706
  4. ETHAMBUTOL [Suspect]
     Indication: PERICARDITIS TUBERCULOUS
     Route: 065
     Dates: start: 201012
  5. LEVOFLOXACIN [Suspect]
     Indication: PERICARDITIS TUBERCULOUS
     Route: 065
     Dates: start: 199702, end: 19970407
  6. LEVOFLOXACIN [Suspect]
     Indication: PERICARDITIS TUBERCULOUS
     Route: 065
     Dates: start: 19970603, end: 19970604
  7. ISONIAZID [Suspect]
     Indication: PERICARDITIS TUBERCULOUS
     Route: 065
     Dates: start: 199702, end: 19970407
  8. ISONIAZID [Suspect]
     Indication: PERICARDITIS TUBERCULOUS
     Route: 065
     Dates: start: 19970714
  9. ISONIAZID [Suspect]
     Indication: PERICARDITIS TUBERCULOUS
     Route: 065
     Dates: start: 199612, end: 199701
  10. RIFAMPICIN [Suspect]
     Indication: PERICARDITIS TUBERCULOUS
     Route: 065
     Dates: start: 199612, end: 199701
  11. RIFAMPICIN [Suspect]
     Indication: PERICARDITIS TUBERCULOUS
     Route: 065
     Dates: start: 199702, end: 19970407
  12. ALLOPURINOL [Suspect]
     Indication: HYPERURICEMIA
     Route: 065
     Dates: start: 19970221, end: 19970411
  13. STREPTOMYCIN [Suspect]
     Indication: PERICARDITIS TUBERCULOUS
     Route: 065
     Dates: start: 19970515, end: 199706
  14. PREDNISOLONE [Concomitant]
     Indication: PERICARDITIS
     Dosage: gradually reduced
     Route: 048
     Dates: start: 199702, end: 199702
  15. PREDNISOLONE [Concomitant]
     Indication: PERICARDITIS
     Dosage: gradually reduced
     Route: 048
     Dates: start: 199702, end: 199703
  16. PREDNISOLONE [Concomitant]
     Indication: PERICARDITIS
     Dosage: gradually reduced
     Route: 048
     Dates: start: 199703, end: 199703
  17. PREDNISOLONE [Concomitant]
     Indication: PERICARDITIS
     Dosage: gradually reduced
     Route: 048
     Dates: start: 199703, end: 199704

REACTIONS (13)
  - Drug reaction with eosinophilia and systemic symptoms [Recovering/Resolving]
  - White blood cell count increased [Recovering/Resolving]
  - Renal impairment [Recovering/Resolving]
  - Rash [Recovering/Resolving]
  - Pyrexia [Recovering/Resolving]
  - Aspartate aminotransferase increased [Recovering/Resolving]
  - Alanine aminotransferase increased [Recovering/Resolving]
  - Rash macular [Recovering/Resolving]
  - Blood creatinine increased [Recovering/Resolving]
  - Blood urea increased [Recovering/Resolving]
  - Eosinophilia [Recovering/Resolving]
  - Drug hypersensitivity [Unknown]
  - Hepatic enzyme increased [Recovering/Resolving]
